FAERS Safety Report 5602182-2 (Version None)
Quarter: 2008Q1

REPORT INFORMATION
  Report Type: 
  Country: None (occurrence: None)
  Receive Date: 20080122
  Receipt Date: 20080110
  Transmission Date: 20080703
  Serious: Yes (Hospitalization, Other)
  Sender: FDA-Public Use
  Company Number: 2008AP000110

PATIENT
  Age: 28 Year
  Sex: Female

DRUGS (4)
  1. FLUOXETINE HCL [Suspect]
     Indication: EATING DISORDER
     Dosage: 60 MG; QD, 20 MG; QD
  2. ELETRIPTAN HYDROBROMIDE (ELETRIPTAN HYDROBROMIDE) [Suspect]
     Indication: MIGRAINE
     Dosage: 40 MG; QD
  3. HYPERICUM PERFORATUM (HYPERICUM PERFORATUM) [Suspect]
  4. AMITRIPTYLINE HCL [Concomitant]

REACTIONS (10)
  - CONFUSIONAL STATE [None]
  - DRUG INTERACTION [None]
  - FIBRIN D DIMER INCREASED [None]
  - GRAND MAL CONVULSION [None]
  - LOSS OF CONSCIOUSNESS [None]
  - MENTAL DISORDER [None]
  - RENAL FAILURE ACUTE [None]
  - RHABDOMYOLYSIS [None]
  - SEROTONIN SYNDROME [None]
  - TONGUE BITING [None]
